FAERS Safety Report 5493351-3 (Version None)
Quarter: 2007Q4

REPORT INFORMATION
  Report Type: 
  Country: None (occurrence: None)
  Receive Date: 20071023
  Receipt Date: 20070928
  Transmission Date: 20080405
  Serious: No
  Sender: FDA-Public Use
  Company Number: JP-BAYER-200715522GDS

PATIENT
  Age: 45 Year
  Sex: Female
  Weight: 57 kg

DRUGS (1)
  1. BUFFERIN [Suspect]
     Indication: PLATELET COUNT INCREASED
     Route: 065

REACTIONS (1)
  - NO ADVERSE DRUG REACTION [None]
